FAERS Safety Report 20961361 (Version 1)
Quarter: 2022Q2

REPORT INFORMATION
  Report Type: Spontaneous
  Country: US (occurrence: None)
  Receive Date: 20220615
  Receipt Date: 20220615
  Transmission Date: 20220721
  Serious: No
  Sender: FDA-Public Use
  Company Number: 2022A217497

PATIENT
  Age: 25683 Day
  Sex: Male

DRUGS (1)
  1. BRILINTA [Suspect]
     Active Substance: TICAGRELOR
     Indication: Stent placement
     Route: 048

REACTIONS (8)
  - Gait disturbance [Unknown]
  - Feeling abnormal [Not Recovered/Not Resolved]
  - Arthralgia [Unknown]
  - Hypertension [Unknown]
  - Visual impairment [Unknown]
  - Dizziness [Unknown]
  - Nausea [Unknown]
  - Hypotension [Unknown]

NARRATIVE: CASE EVENT DATE: 20220609
